FAERS Safety Report 21212684 (Version 4)
Quarter: 2022Q4

REPORT INFORMATION
  Report Type: Report from Study
  Country: DE (occurrence: DE)
  Receive Date: 20220815
  Receipt Date: 20221018
  Transmission Date: 20230113
  Serious: Yes (Death)
  Sender: FDA-Public Use
  Company Number: DE-PFIZER INC-PV202200040721

PATIENT
  Age: 75 Year
  Sex: Female

DRUGS (2)
  1. PALBOCICLIB [Suspect]
     Active Substance: PALBOCICLIB
     Indication: Breast cancer
     Dosage: 75 MG, CYCLIC (DAILY FROM DAY 1 TO DAY 21 EVERY 28 CYCLE)
     Route: 048
     Dates: start: 20220409, end: 20220722
  2. FULVESTRANT [Suspect]
     Active Substance: FULVESTRANT
     Indication: Breast cancer
     Dosage: 500 MG, CYCLIC (DAY 1 OF 28 DAY CYCLE)
     Route: 030
     Dates: start: 20220506, end: 20220701

REACTIONS (1)
  - Death [Fatal]

NARRATIVE: CASE EVENT DATE: 20220724
